FAERS Safety Report 13521822 (Version 4)
Quarter: 2017Q2

REPORT INFORMATION
  Report Type: Report from Study
  Country: US (occurrence: US)
  Receive Date: 20170508
  Receipt Date: 20170608
  Transmission Date: 20170830
  Serious: Yes (Other)
  Sender: FDA-Public Use
  Company Number: US-MALLINCKRODT-T201700836

PATIENT
  Sex: Female

DRUGS (2)
  1. REPOSITORY CORTICOTROPIN INJECTION [Suspect]
     Active Substance: CORTICOTROPIN
     Indication: SARCOIDOSIS
     Dosage: 80U/1ML 2X/WK (TUESDAY AND FRIDAY)
     Route: 058
     Dates: start: 20161111, end: 20170411
  2. REPOSITORY CORTICOTROPIN INJECTION [Suspect]
     Active Substance: CORTICOTROPIN
     Dosage: 80U/1ML 2X/WK (TUESDAY AND FRIDAY)
     Route: 058
     Dates: start: 20161111

REACTIONS (17)
  - Weight increased [Not Recovered/Not Resolved]
  - Vaginal infection [Not Recovered/Not Resolved]
  - Fungal infection [Recovering/Resolving]
  - Oedema peripheral [Not Recovered/Not Resolved]
  - Peripheral swelling [Not Recovered/Not Resolved]
  - Pilonidal cyst [Not Recovered/Not Resolved]
  - Gastritis [Unknown]
  - Abdominal tenderness [Not Recovered/Not Resolved]
  - Rash [Recovering/Resolving]
  - Pain in extremity [Not Recovered/Not Resolved]
  - Musculoskeletal stiffness [Recovering/Resolving]
  - Decreased appetite [Not Recovered/Not Resolved]
  - Product quality issue [Not Recovered/Not Resolved]
  - Discomfort [Not Recovered/Not Resolved]
  - Gait disturbance [Not Recovered/Not Resolved]
  - Abdominal distension [Not Recovered/Not Resolved]
  - Joint stiffness [Recovering/Resolving]
